FAERS Safety Report 24398031 (Version 2)
Quarter: 2024Q4

REPORT INFORMATION
  Report Type: Report from Study
  Country: US (occurrence: US)
  Receive Date: 20241004
  Receipt Date: 20241025
  Transmission Date: 20250114
  Serious: Yes (Death, Hospitalization, Other)
  Sender: GILEAD
  Company Number: US-GILEAD-2024-0689914

PATIENT
  Age: 74 Year
  Sex: Male

DRUGS (4)
  1. AMBRISENTAN [Suspect]
     Active Substance: AMBRISENTAN
     Indication: Product used for unknown indication
     Dosage: 10 MG, QD
     Route: 065
     Dates: start: 202407
  2. TYVASO [Concomitant]
     Active Substance: TREPROSTINIL
  3. ELIQUIS [Concomitant]
     Active Substance: APIXABAN
  4. SILDENAFIL CITRATE [Concomitant]
     Active Substance: SILDENAFIL CITRATE

REACTIONS (2)
  - Death [Fatal]
  - Heart rate increased [Unknown]

NARRATIVE: CASE EVENT DATE: 20241013
